FAERS Safety Report 4996666-8 (Version None)
Quarter: 2006Q2

REPORT INFORMATION
  Report Type: 
  Country: None (occurrence: None)
  Receive Date: 20060509
  Receipt Date: 20050511
  Transmission Date: 20061013
  Serious: Yes (Death)
  Sender: FDA-Public Use
  Company Number: US-MERCK-0505USA01496

PATIENT
  Age: 55 Year
  Sex: Male
  Weight: 125 kg

DRUGS (2)
  1. VIOXX [Suspect]
     Indication: ARTHRITIS
     Route: 048
     Dates: start: 19991208, end: 20000101
  2. VIOXX [Suspect]
     Route: 048
     Dates: end: 20030120

REACTIONS (11)
  - ANAEMIA [None]
  - BLOOD CHOLESTEROL INCREASED [None]
  - CHRONIC SINUSITIS [None]
  - GASTRITIS [None]
  - HAEMORRHOIDS [None]
  - HYPERTENSION [None]
  - MYOCARDIAL INFARCTION [None]
  - NEPHROLITHIASIS [None]
  - OBESITY [None]
  - SERUM FERRITIN DECREASED [None]
  - SLEEP APNOEA SYNDROME [None]
